FAERS Safety Report 18068041 (Version 1)
Quarter: 2020Q3

REPORT INFORMATION
  Report Type: Spontaneous
  Country: CN (occurrence: CN)
  Receive Date: 20200724
  Receipt Date: 20200724
  Transmission Date: 20201103
  Serious: Yes (Hospitalization)
  Sender: FDA-Public Use
  Company Number: CN-PFIZER INC-2020280948

PATIENT
  Age: 49 Year
  Sex: Male
  Weight: 53 kg

DRUGS (4)
  1. LV TING NUO [Suspect]
     Active Substance: GLUTATHIONE
     Indication: HEPATIC FUNCTION ABNORMAL
     Dosage: 1.2 G, 1X/DAY
     Route: 041
     Dates: start: 20200706, end: 20200708
  2. VFEND [Suspect]
     Active Substance: VORICONAZOLE
     Indication: PNEUMONIA FUNGAL
     Dosage: 0.2 G, 2X/DAY
     Route: 048
     Dates: start: 20200601, end: 20200706
  3. SODIUM CHLORIDE. [Concomitant]
     Active Substance: SODIUM CHLORIDE
     Indication: VEHICLE SOLUTION USE
     Dosage: 100 ML, 1X/DAY
     Route: 041
     Dates: start: 20200706, end: 20200708
  4. COMPOUND GLYCYRRHIZIN INJECTION (CYSTEINE\GLYCINE\GLYCYRRHIZIN) [Suspect]
     Active Substance: CYSTEINE\GLYCINE\GLYCYRRHIZIN
     Indication: HEPATIC FUNCTION ABNORMAL
     Dosage: 60.000 ML, 1X/DAY
     Route: 041
     Dates: start: 20200706, end: 20200708

REACTIONS (6)
  - Macule [Recovering/Resolving]
  - Rash maculo-papular [Recovering/Resolving]
  - Hepatic function abnormal [Recovering/Resolving]
  - Hypersensitivity [Recovering/Resolving]
  - Rash [Recovering/Resolving]
  - Pruritus [Recovering/Resolving]

NARRATIVE: CASE EVENT DATE: 20200706
